FAERS Safety Report 9502780 (Version 3)
Quarter: 2013Q3

REPORT INFORMATION
  Report Type: Spontaneous
  Country: DE (occurrence: DE)
  Receive Date: 20130906
  Receipt Date: 20130923
  Transmission Date: 20140515
  Serious: Yes (Life-Threatening, Hospitalization)
  Sender: FDA-Public Use
  Company Number: DE-JNJFOC-20130900899

PATIENT
  Age: 61 Year
  Sex: Male

DRUGS (8)
  1. REMICADE [Suspect]
     Indication: ANKYLOSING SPONDYLITIS
     Route: 042
     Dates: start: 20130717
  2. REMICADE [Suspect]
     Indication: ANKYLOSING SPONDYLITIS
     Dosage: 400MG
     Route: 042
  3. REMICADE [Suspect]
     Indication: ANKYLOSING SPONDYLITIS
     Dosage: 400 MG
     Route: 042
     Dates: start: 20130827
  4. REMICADE [Suspect]
     Indication: CROHN^S DISEASE
     Dosage: 400 MG
     Route: 042
     Dates: start: 20130827
  5. REMICADE [Suspect]
     Indication: CROHN^S DISEASE
     Dosage: 400MG
     Route: 042
  6. REMICADE [Suspect]
     Indication: CROHN^S DISEASE
     Route: 042
     Dates: start: 20130717
  7. PREDNISONE [Concomitant]
     Indication: PREMEDICATION
     Route: 065
     Dates: start: 20130827
  8. BUDESONIDE [Concomitant]
     Indication: CROHN^S DISEASE
     Dosage: SINCE 5 YEARS
     Route: 065
     Dates: start: 2008

REACTIONS (5)
  - Dyspnoea [Recovered/Resolved]
  - Feeling hot [Recovered/Resolved]
  - Shock [Recovered/Resolved]
  - Infusion related reaction [Recovered/Resolved]
  - Oropharyngeal pain [Recovered/Resolved]
